FAERS Safety Report 24784912 (Version 2)
Quarter: 2025Q1

REPORT INFORMATION
  Report Type: Spontaneous
  Country: US (occurrence: US)
  Receive Date: 20241228
  Receipt Date: 20250301
  Transmission Date: 20250408
  Serious: No
  Sender: SANOFI AVENTIS
  Company Number: US-SA-2024SA382430

PATIENT
  Age: 62 Year
  Sex: Female

DRUGS (10)
  1. DUPIXENT [Suspect]
     Active Substance: DUPILUMAB
     Indication: Dermatitis atopic
     Dosage: 300 MG, QOW
     Route: 058
     Dates: start: 20240118
  2. CYANOCOBALAMIN [Concomitant]
     Active Substance: CYANOCOBALAMIN
  3. LANTUS SOLOSTAR [Concomitant]
     Active Substance: INSULIN GLARGINE
  4. LINZESS [Concomitant]
     Active Substance: LINACLOTIDE
  5. METFORMIN [Concomitant]
     Active Substance: METFORMIN HYDROCHLORIDE
  6. VITAMINS NOS [Concomitant]
     Active Substance: VITAMINS
  7. POTASSIUM [Concomitant]
     Active Substance: POTASSIUM
  8. SYNTHROID [Concomitant]
     Active Substance: LEVOTHYROXINE SODIUM
  9. VITAMIN B COMPLEX [Concomitant]
     Active Substance: CYANOCOBALAMIN\DEXPANTHENOL\NIACINAMIDE\PYRIDOXINE HYDROCHLORIDE\RIBOFLAVIN 5^-PHOSPHATE SODIUM\THIA
  10. VITAMIN D2 [Concomitant]
     Active Substance: ERGOCALCIFEROL

REACTIONS (6)
  - Sleep disorder due to a general medical condition [Not Recovered/Not Resolved]
  - Discomfort [Unknown]
  - Pain in extremity [Unknown]
  - Condition aggravated [Unknown]
  - Dermatitis atopic [Not Recovered/Not Resolved]
  - Rash [Unknown]

NARRATIVE: CASE EVENT DATE: 20240101
